FAERS Safety Report 19982991 (Version 1)
Quarter: 2021Q4

REPORT INFORMATION
  Report Type: Spontaneous
  Country: US (occurrence: US)
  Receive Date: 20211021
  Receipt Date: 20211021
  Transmission Date: 20220303
  Serious: Yes (Other)
  Sender: FDA-Public Use
  Company Number: US-EYEVANCE PHARMACEUTICALS-2021EYE00308

PATIENT
  Age: 64 Year
  Sex: Female
  Weight: 73.92 kg

DRUGS (10)
  1. NATACYN [Suspect]
     Active Substance: NATAMYCIN
     Indication: Fungal infection
     Dosage: 1 DROP EVERY HOUR IN THE RIGHT EYE
     Route: 047
     Dates: start: 20211006, end: 20211007
  2. MOXIFLOXACIN [Concomitant]
     Active Substance: MOXIFLOXACIN
     Dosage: EVERY 3 HOURS
  3. PREDNISOLONE ACETATE [Concomitant]
     Active Substance: PREDNISOLONE ACETATE
     Dosage: EVERY 3 HOURS
  4. POLYMYXIN [Concomitant]
     Active Substance: POLYMYXIN
     Dosage: EVERY 3 HOURS
  5. ACYCLOVIR [Concomitant]
     Active Substance: ACYCLOVIR
     Dosage: UNK, 2X/DAY
  6. VORICONAZOLE [Concomitant]
     Active Substance: VORICONAZOLE
  7. OMEPRAZOLE [Concomitant]
     Active Substance: OMEPRAZOLE
  8. GABAPENTIN [Concomitant]
     Active Substance: GABAPENTIN
  9. CELECOXIB [Concomitant]
     Active Substance: CELECOXIB
  10. DEXTROAMPHET SACCHARAT, AMPHET ASPARTATE, DEXTROAMPHET SULFATE AND AMP [Concomitant]
     Active Substance: AMPHETAMINE ASPARTATE\AMPHETAMINE SULFATE\DEXTROAMPHETAMINE SACCHARATE\DEXTROAMPHETAMINE SULFATE
     Dosage: UNK, 1X/DAY IN THE MORNING

REACTIONS (9)
  - Eye injury [Not Recovered/Not Resolved]
  - Visual impairment [Not Recovered/Not Resolved]
  - Product quality issue [Unknown]
  - Product contamination physical [Unknown]
  - Eyelid margin crusting [Recovering/Resolving]
  - Foreign body in eye [Recovering/Resolving]
  - Eye irritation [Recovering/Resolving]
  - Vision blurred [Not Recovered/Not Resolved]
  - Foreign body sensation in eyes [Recovering/Resolving]

NARRATIVE: CASE EVENT DATE: 20211001
